FAERS Safety Report 6878112-2 (Version None)
Quarter: 2010Q2

REPORT INFORMATION
  Report Type: 
  Country: None (occurrence: None)
  Receive Date: 20100616
  Receipt Date: 20100216
  Transmission Date: 20101027
  Serious: No
  Sender: FDA-Public Use
  Company Number: DSA_42637_2010

PATIENT
  Sex: Female

DRUGS (6)
  1. XENAZINE [Suspect]
     Indication: DYSTONIA
     Dosage: 25 MG TID ORAL
     Route: 048
  2. CELEXA [Concomitant]
  3. FENEX [Concomitant]
  4. CLOZAPINE [Concomitant]
  5. PROVIGIL [Concomitant]
  6. BONIVA [Concomitant]

REACTIONS (1)
  - DEPRESSION [None]
